FAERS Safety Report 24133959 (Version 2)
Quarter: 2024Q3

REPORT INFORMATION
  Report Type: Report from Study
  Country: IL (occurrence: IL)
  Receive Date: 20240724
  Receipt Date: 20240924
  Transmission Date: 20241016
  Serious: Yes (Hospitalization)
  Sender: CARA THERAPEUTICS
  Company Number: IL-Vifor Pharma-VIT-2024-00533

PATIENT
  Sex: Female
  Weight: 85 kg

DRUGS (4)
  1. KORSUVA [Suspect]
     Active Substance: DIFELIKEFALIN ACETATE
     Indication: Pruritus
     Dosage: IN DECEMBER (50 MCG, 3 IN 1 WK)
     Route: 040
  2. KORSUVA [Suspect]
     Active Substance: DIFELIKEFALIN ACETATE
     Dosage: (25 MCG, 3 IN 1 WK)
     Route: 040
     Dates: start: 202401, end: 20240614
  3. KORSUVA [Suspect]
     Active Substance: DIFELIKEFALIN ACETATE
     Dosage: (25 MCG, 1 IN 1 WK)
     Route: 040
     Dates: start: 2024
  4. KORSUVA [Suspect]
     Active Substance: DIFELIKEFALIN ACETATE
     Dosage: (25 MCG, 2 IN 1 WK)
     Route: 040
     Dates: start: 20240610

REACTIONS (5)
  - Photopsia [Unknown]
  - Dizziness [Recovering/Resolving]
  - Confusional state [Recovering/Resolving]
  - Headache [Unknown]
  - Asthenia [Unknown]

NARRATIVE: CASE EVENT DATE: 20240610
